FAERS Safety Report 4701689-X (Version None)
Quarter: 2005Q2

REPORT INFORMATION
  Report Type: 
  Country: None (occurrence: None)
  Receive Date: 20050628
  Receipt Date: 19970724
  Transmission Date: 20051028
  Serious: Yes (Other)
  Sender: FDA-Public Use
  Company Number: PHHO1997BR04069

PATIENT
  Age: 49 Year
  Sex: Male
  Weight: 110 kg

DRUGS (3)
  1. ALLOPURINOL [Concomitant]
  2. ETOFIBRATE [Concomitant]
  3. DIOVAN [Suspect]
     Dosage: 80 MG, QD
     Route: 048
     Dates: start: 19970501

REACTIONS (5)
  - ANGIOPLASTY [None]
  - CHEST PAIN [None]
  - COUGH [None]
  - ELECTROCARDIOGRAM ABNORMAL [None]
  - HEADACHE [None]
